FAERS Safety Report 5163361-4 (Version None)
Quarter: 2006Q4

REPORT INFORMATION
  Report Type: 
  Country: None (occurrence: None)
  Receive Date: 20061204
  Receipt Date: 20061110
  Transmission Date: 20070319
  Serious: Yes (Death, Hospitalization)
  Sender: FDA-Public Use
  Company Number: PHBS2006PL17755

PATIENT
  Age: 57 Year
  Sex: Male

DRUGS (3)
  1. METOPROLOL SUCCINATE [Suspect]
     Indication: HYPERTENSION
     Dosage: 25 MG, BID
     Route: 048
  2. INDAPAMIDE [Concomitant]
     Indication: HYPERTENSION
     Dosage: 1.5 MG/DAY
  3. ENALAPRIL MALEATE [Concomitant]
     Indication: HYPERTENSION
     Dosage: 10 MG, BID

REACTIONS (17)
  - AGITATION [None]
  - ANXIETY [None]
  - AORTIC DISSECTION [None]
  - ARTERIOSCLEROSIS [None]
  - BLOOD GLUCOSE INCREASED [None]
  - BLOOD PRESSURE INCREASED [None]
  - CARDIAC TAMPONADE [None]
  - COMMUNICATION DISORDER [None]
  - CONJUNCTIVAL HYPERAEMIA [None]
  - FEELING HOT [None]
  - FLUSHING [None]
  - HEADACHE [None]
  - HYPERAEMIA [None]
  - PERICARDIAL HAEMORRHAGE [None]
  - PERICARDITIS [None]
  - SUPERIOR VENA CAVAL OCCLUSION [None]
  - VENTRICULAR HYPERTROPHY [None]
